FAERS Safety Report 15160799 (Version 2)
Quarter: 2018Q3

REPORT INFORMATION
  Report Type: Spontaneous
  Country: US (occurrence: US)
  Receive Date: 20180718
  Receipt Date: 20180903
  Transmission Date: 20181010
  Serious: Yes (Other)
  Sender: FDA-Public Use
  Company Number: US-ELI_LILLY_AND_COMPANY-US201807007484

PATIENT
  Sex: Male
  Weight: 28.12 kg

DRUGS (4)
  1. PROZAC [Suspect]
     Active Substance: FLUOXETINE HYDROCHLORIDE
     Indication: PRODUCT USED FOR UNKNOWN INDICATION
     Dosage: UNK, UNKNOWN
     Route: 065
  2. HUMIRA [Concomitant]
     Active Substance: ADALIMUMAB
     Dosage: 40 MG, DAILY
     Route: 058
     Dates: start: 20180429, end: 20180429
  3. HUMIRA [Concomitant]
     Active Substance: ADALIMUMAB
     Dosage: 20 MG, 2/M
     Route: 058
     Dates: start: 20180513
  4. HUMIRA [Concomitant]
     Active Substance: ADALIMUMAB
     Indication: CROHN^S DISEASE
     Dosage: 80 MG, DAILY
     Route: 058
     Dates: start: 20180415, end: 20180415

REACTIONS (14)
  - Rectal prolapse [Unknown]
  - Fear [Unknown]
  - Depressed mood [Unknown]
  - Decreased appetite [Recovered/Resolved]
  - Hypersensitivity [Unknown]
  - Constipation [Recovered/Resolved]
  - Frequent bowel movements [Unknown]
  - Oral fungal infection [Unknown]
  - Malaise [Unknown]
  - Sinus disorder [Unknown]
  - Abdominal pain [Recovered/Resolved]
  - Rash pruritic [Recovered/Resolved]
  - Rash erythematous [Recovered/Resolved]
  - Insomnia [Unknown]

NARRATIVE: CASE EVENT DATE: 2018
